FAERS Safety Report 8576452-2 (Version None)
Quarter: 2012Q3

REPORT INFORMATION
  Report Type: 
  Country: None (occurrence: None)
  Receive Date: 20120807
  Receipt Date: 20120112
  Transmission Date: 20120928
  Serious: Yes (Other)
  Sender: FDA-Public Use
  Company Number: US-ROCHE-1097627

PATIENT
  Sex: Male
  Weight: 107 kg

DRUGS (6)
  1. FLONASE [Concomitant]
  2. FLUTICASONE PROPIONATE [Concomitant]
     Dosage: 500/50
  3. ALLEGRA-D 12 HOUR [Concomitant]
  4. XOLAIR [Suspect]
     Indication: ASTHMA
     Dates: start: 20040402, end: 20060526
  5. SINGULAIR [Concomitant]
  6. PROVENTIL [Concomitant]

REACTIONS (7)
  - SINUS CONGESTION [None]
  - WHEEZING [None]
  - NASAL CONGESTION [None]
  - RHINITIS [None]
  - COUGH [None]
  - SNEEZING [None]
  - DYSPNOEA [None]
